FAERS Safety Report 14286235 (Version 1)
Quarter: 2017Q4

REPORT INFORMATION
  Report Type: Spontaneous
  Country: US (occurrence: US)
  Receive Date: 20171214
  Receipt Date: 20171214
  Transmission Date: 20180321
  Serious: Yes (Other)
  Sender: FDA-Public Use
  Company Number: US-OTSUKA-BMS-2016-107575

PATIENT
  Age: 51 Year

DRUGS (2)
  1. ABILIFY [Suspect]
     Active Substance: ARIPIPRAZOLE
     Indication: SCHIZOPHRENIA
     Dosage: 1 DF, UNK
     Route: 065
     Dates: start: 20040510, end: 20160601
  2. ARIPIPRAZOLE. [Suspect]
     Active Substance: ARIPIPRAZOLE
     Indication: SCHIZOPHRENIA
     Dosage: 1 DF, UNK
     Route: 065
     Dates: start: 20040510, end: 20160601

REACTIONS (6)
  - Obsessive-compulsive disorder [Unknown]
  - Compulsive shopping [Unknown]
  - Suicidal ideation [Unknown]
  - Binge eating [Unknown]
  - Suicide attempt [Unknown]
  - Gambling [Unknown]

NARRATIVE: CASE EVENT DATE: 20170513
